FAERS Safety Report 8072787-0 (Version None)
Quarter: 2012Q1

REPORT INFORMATION
  Report Type: 
  Country: None (occurrence: None)
  Receive Date: 20120120
  Receipt Date: 20120119
  Transmission Date: 20120608
  Serious: Yes (Death, Hospitalization, Other)
  Sender: FDA-Public Use
  Company Number: 2011SP051326

PATIENT
  Age: 72 Year
  Sex: Male
  Weight: 51 kg

DRUGS (5)
  1. KYTRIL /01178102/ [Concomitant]
  2. TEMODAL [Suspect]
     Indication: GLIOBLASTOMA MULTIFORME
     Dosage: PO, 200 MG/M2; IV
     Route: 048
     Dates: start: 20100915, end: 20110624
  3. TEMODAL [Suspect]
     Indication: GLIOBLASTOMA MULTIFORME
     Dosage: PO, 200 MG/M2; IV
     Route: 048
     Dates: start: 20080804, end: 20100822
  4. VALPROATE SODIUM [Concomitant]
  5. DEPAKENE [Concomitant]

REACTIONS (5)
  - NEOPLASM PROGRESSION [None]
  - BLOOD ALBUMIN DECREASED [None]
  - GLIOBLASTOMA MULTIFORME [None]
  - C-REACTIVE PROTEIN INCREASED [None]
  - ASPIRATION [None]
